FAERS Safety Report 12351395 (Version 2)
Quarter: 2016Q3

REPORT INFORMATION
  Report Type: Spontaneous
  Country: CH (occurrence: CH)
  Receive Date: 20160510
  Receipt Date: 20160825
  Transmission Date: 20161109
  Serious: Yes (Hospitalization, Other)
  Sender: FDA-Public Use
  Company Number: CH-PFIZER INC-2016248629

PATIENT
  Age: 66 Year
  Sex: Female
  Weight: 47 kg

DRUGS (4)
  1. XELJANZ [Suspect]
     Active Substance: TOFACITINIB CITRATE
     Indication: RHEUMATOID ARTHRITIS
     Dosage: 5 MG, 2X/DAY
     Route: 048
     Dates: start: 201410, end: 201602
  2. LEFLUMIDE [Concomitant]
     Indication: POLYARTHRITIS
     Dosage: 20 MG, 1X/DAY
     Route: 048
     Dates: start: 20150330, end: 201602
  3. ACTONEL [Concomitant]
     Active Substance: RISEDRONATE SODIUM
     Indication: OSTEOPOROSIS
     Dosage: 35 MG, 1X/WEEK
     Route: 048
     Dates: start: 201505
  4. VITAMIN D3 [Concomitant]
     Active Substance: CHOLECALCIFEROL
     Indication: OSTEOPOROSIS
     Dosage: 15 DROPS, 1X/DAY
     Route: 048
     Dates: start: 201505

REACTIONS (2)
  - Osteomyelitis bacterial [Recovering/Resolving]
  - Staphylococcal abscess [Recovering/Resolving]

NARRATIVE: CASE EVENT DATE: 201602
